FAERS Safety Report 9320611 (Version 6)
Quarter: 2016Q1

REPORT INFORMATION
  Report Type: Report from Study
  Country: CA (occurrence: CA)
  Receive Date: 20130531
  Receipt Date: 20160330
  Transmission Date: 20160526
  Serious: Yes (Hospitalization, Other)
  Sender: FDA-Public Use
  Company Number: CA-ROCHE-1230085

PATIENT
  Age: 65 Year
  Sex: Female
  Weight: 81.6 kg

DRUGS (14)
  1. ACETAMINOPHEN. [Concomitant]
     Active Substance: ACETAMINOPHEN
     Indication: PREMEDICATION
     Route: 048
     Dates: start: 20101007
  2. CITALOPRAM [Concomitant]
     Active Substance: CITALOPRAM HYDROBROMIDE
  3. CELEBREX [Concomitant]
     Active Substance: CELECOXIB
  4. ALENDRONATE [Concomitant]
     Active Substance: ALENDRONATE SODIUM
  5. EURO-FOLIC [Concomitant]
  6. DIPHENHYDRAMINE HCL [Concomitant]
     Active Substance: DIPHENHYDRAMINE HYDROCHLORIDE
     Indication: PREMEDICATION
     Route: 048
     Dates: start: 20101007
  7. METHOTREXATE [Concomitant]
     Active Substance: METHOTREXATE
  8. PREDNISONE. [Concomitant]
     Active Substance: PREDNISONE
  9. CARBOCAL [Concomitant]
     Active Substance: CALCIUM CARBONATE
  10. OXAZEPAM. [Concomitant]
     Active Substance: OXAZEPAM
  11. METHYLPREDNISOLONE. [Concomitant]
     Active Substance: METHYLPREDNISOLONE
     Indication: PREMEDICATION
     Route: 042
     Dates: start: 20101007
  12. RITUXAN [Suspect]
     Active Substance: RITUXIMAB
     Indication: RHEUMATOID ARTHRITIS
     Route: 042
     Dates: start: 20101007
  13. PANTOLOC [Concomitant]
     Active Substance: PANTOPRAZOLE SODIUM
  14. BROMAZEPAM [Concomitant]
     Active Substance: BROMAZEPAM
     Route: 065

REACTIONS (4)
  - Ill-defined disorder [Unknown]
  - Hypovitaminosis [Unknown]
  - Arthralgia [Not Recovered/Not Resolved]
  - Endometrial cancer [Recovered/Resolved]

NARRATIVE: CASE EVENT DATE: 201305
